FAERS Safety Report 8113393-9 (Version None)
Quarter: 2012Q1

REPORT INFORMATION
  Report Type: 
  Country: None (occurrence: None)
  Receive Date: 20120203
  Receipt Date: 20120129
  Transmission Date: 20120608
  Serious: Yes (Other)
  Sender: FDA-Public Use
  Company Number: PHHY2012CA008550

PATIENT
  Sex: Male

DRUGS (2)
  1. VITAMIN D [Concomitant]
     Dosage: 1000 UKN, PER DAY
  2. ZOLEDRONOC ACID [Suspect]
     Dosage: UNK UKN, UNK
     Route: 042

REACTIONS (3)
  - VITAMIN D DECREASED [None]
  - HAEMOGLOBIN DECREASED [None]
  - COELIAC DISEASE [None]
